FAERS Safety Report 17739467 (Version 1)
Quarter: 2020Q2

REPORT INFORMATION
  Report Type: Spontaneous
  Country: US (occurrence: US)
  Receive Date: 20200501
  Receipt Date: 20200501
  Transmission Date: 20200714
  Serious: Yes (Hospitalization)
  Sender: FDA-Public Use
  Company Number: None

PATIENT
  Sex: Female

DRUGS (8)
  1. ALLOPURINOL. [Concomitant]
     Active Substance: ALLOPURINOL
  2. CALCIUM D [Concomitant]
     Active Substance: CALCIUM\VITAMIN D
  3. HUMIRA [Suspect]
     Active Substance: ADALIMUMAB
     Indication: RHEUMATOID ARTHRITIS
     Dosage: ?          OTHER FREQUENCY:EVERY 2 WEEKS;?
     Route: 058
     Dates: start: 20190823
  4. LISINOPRIL. [Concomitant]
     Active Substance: LISINOPRIL
  5. ALENDRONATE [Concomitant]
     Active Substance: ALENDRONATE SODIUM
  6. FOLIC ACID. [Concomitant]
     Active Substance: FOLIC ACID
  7. METHOTREXATE. [Concomitant]
     Active Substance: METHOTREXATE
  8. GABAPENTIN. [Concomitant]
     Active Substance: GABAPENTIN

REACTIONS (4)
  - Therapy interrupted [None]
  - Rheumatoid arthritis [None]
  - Depression [None]
  - Pain [None]
